FAERS Safety Report 8355262-5 (Version None)
Quarter: 2012Q2

REPORT INFORMATION
  Report Type: 
  Country: None (occurrence: None)
  Receive Date: 20120511
  Receipt Date: 20120507
  Transmission Date: 20120825
  Serious: Yes (Death)
  Sender: FDA-Public Use
  Company Number: DE-ACTELION-A-US2012-65411

PATIENT
  Sex: Male

DRUGS (2)
  1. REVATIO [Concomitant]
  2. VENTAVIS [Suspect]
     Indication: PULMONARY ARTERIAL HYPERTENSION
     Dosage: 2.5 ?G, QID
     Route: 055
     Dates: start: 20110721

REACTIONS (3)
  - DEATH [None]
  - HEADACHE [None]
  - FATIGUE [None]
